FAERS Safety Report 9748270 (Version 2)
Quarter: 2013Q4

REPORT INFORMATION
  Report Type: Report from Study
  Country: CA (occurrence: CA)
  Receive Date: 20131212
  Receipt Date: 20131212
  Transmission Date: 20140711
  Serious: Yes (Death)
  Sender: FDA-Public Use
  Company Number: CA-ROCHE-1310124

PATIENT
  Sex: Female

DRUGS (12)
  1. AVASTIN [Suspect]
     Indication: GLIOBLASTOMA
     Route: 042
     Dates: start: 20131112, end: 20131112
  2. DIPHENHYDRAMINE HCL [Concomitant]
     Route: 048
     Dates: start: 20131112, end: 20131112
  3. ACETAMINOPHEN [Concomitant]
     Route: 048
     Dates: start: 20131112, end: 20131112
  4. METHYLPREDNISOLONE [Concomitant]
     Route: 042
     Dates: start: 20131112, end: 20131112
  5. PANTOLOC [Concomitant]
     Route: 065
  6. DEXAMETHASONE [Concomitant]
     Route: 065
  7. KEPPRA [Concomitant]
     Route: 065
  8. FRISIUM [Concomitant]
     Dosage: HS (AT BEDTIME)
     Route: 065
  9. CIPRALEX [Concomitant]
     Route: 065
  10. TEMODAL [Concomitant]
     Dosage: 330MG 5 DAY ON A 28 DAYS CYCLE.
     Route: 065
  11. ZOFRAN [Concomitant]
     Dosage: 30 MINUTE BEFORE HS (BEDTIME)
     Route: 065
  12. ATIVAN [Concomitant]
     Dosage: PRN, AS SLEEPING AID
     Route: 065

REACTIONS (1)
  - Disease progression [Fatal]
